FAERS Safety Report 5409085-7 (Version None)
Quarter: 2007Q3

REPORT INFORMATION
  Report Type: 
  Country: None (occurrence: None)
  Receive Date: 20070808
  Receipt Date: 20070731
  Transmission Date: 20080115
  Serious: Yes (Hospitalization, Disabling)
  Sender: FDA-Public Use
  Company Number: US-MERCK-0607USA01889

PATIENT
  Age: 68 Year
  Sex: Male
  Weight: 73 kg

DRUGS (11)
  1. FOSAMAX [Suspect]
     Indication: OSTEOPOROSIS
     Route: 048
     Dates: start: 20010518, end: 20060406
  2. FOSAMAX [Suspect]
     Route: 048
     Dates: start: 20000727, end: 20010517
  3. ENBREL [Concomitant]
     Route: 065
  4. ARAVA [Concomitant]
     Route: 065
  5. PREDNISONE [Concomitant]
     Route: 065
     Dates: start: 19990101, end: 20060101
  6. FOLIC ACID [Concomitant]
     Route: 065
  7. DIOVAN HCT [Concomitant]
     Route: 065
  8. TRAMADOL HYDROCHLORIDE [Concomitant]
     Route: 065
  9. TYLENOL (CAPLET) [Concomitant]
     Route: 048
  10. VITAMINS (UNSPECIFIED) [Concomitant]
     Route: 048
  11. CALCIUM (UNSPECIFIED) AND VITAMIN D (UNSPECIFIED) [Concomitant]
     Route: 048

REACTIONS (21)
  - ANAEMIA [None]
  - ANXIETY [None]
  - ARTHRALGIA [None]
  - DEPRESSION [None]
  - DIVERTICULITIS [None]
  - DYSPEPSIA [None]
  - DYSPHAGIA [None]
  - DYSPNOEA [None]
  - FATIGUE [None]
  - HAEMORRHOIDS [None]
  - HYPERGLYCAEMIA [None]
  - HYPERTENSION [None]
  - IRON DEFICIENCY [None]
  - OSTEOMYELITIS [None]
  - OSTEONECROSIS [None]
  - PROSTATIC SPECIFIC ANTIGEN INCREASED [None]
  - RENAL FAILURE ACUTE [None]
  - SYNCOPE [None]
  - TACHYCARDIA [None]
  - URINARY RETENTION POSTOPERATIVE [None]
  - VERTIGO [None]
